FAERS Safety Report 23578494 (Version 1)
Quarter: 2024Q1

REPORT INFORMATION
  Report Type: Spontaneous
  Country: US (occurrence: US)
  Receive Date: 20240229
  Receipt Date: 20240229
  Transmission Date: 20240410
  Serious: Yes (Other)
  Sender: FDA-Public Use
  Company Number: US-SUN PHARMACEUTICAL INDUSTRIES LTD-2024R1-433243

PATIENT
  Age: 42 Year
  Sex: Male

DRUGS (5)
  1. DIPHENHYDRAMINE [Suspect]
     Active Substance: DIPHENHYDRAMINE
     Indication: Agitation
     Dosage: 150 MILLIGRAM
     Route: 065
  2. HALOPERIDOL [Suspect]
     Active Substance: HALOPERIDOL
     Indication: Agitation
     Dosage: 15 MILLIGRAM
     Route: 065
  3. LORAZEPAM [Suspect]
     Active Substance: LORAZEPAM
     Indication: Agitation
     Dosage: 2 MILLIGRAM
     Route: 065
  4. MIDAZOLAM [Suspect]
     Active Substance: MIDAZOLAM
     Indication: Agitation
     Dosage: 10 MILLIGRAM
     Route: 065
  5. OLANZAPINE [Suspect]
     Active Substance: OLANZAPINE
     Indication: Agitation
     Dosage: 10 MILLIGRAM
     Route: 065

REACTIONS (1)
  - Condition aggravated [Unknown]
